FAERS Safety Report 4932031-7 (Version None)
Quarter: 2006Q1

REPORT INFORMATION
  Report Type: 
  Country: None (occurrence: None)
  Receive Date: 20060303
  Receipt Date: 20050929
  Transmission Date: 20060701
  Serious: Yes (Hospitalization, Disabling)
  Sender: FDA-Public Use
  Company Number: US-MERCK-0510USA00645

PATIENT
  Age: 55 Year
  Sex: Male
  Weight: 86 kg

DRUGS (2)
  1. VIOXX [Suspect]
     Indication: ARTHRITIS
     Route: 048
     Dates: start: 20020128, end: 20040919
  2. ASPIRIN [Concomitant]
     Route: 065

REACTIONS (7)
  - ATRIAL FIBRILLATION [None]
  - CAROTID ARTERY DISEASE [None]
  - CORONARY ARTERY DISEASE [None]
  - HEART RATE INCREASED [None]
  - MYOCARDIAL INFARCTION [None]
  - SICK SINUS SYNDROME [None]
  - UMBILICAL HERNIA [None]
